FAERS Safety Report 8543094-4 (Version None)
Quarter: 2012Q3

REPORT INFORMATION
  Report Type: 
  Country: None (occurrence: None)
  Receive Date: 20120727
  Receipt Date: 20110914
  Transmission Date: 20120928
  Serious: No
  Sender: FDA-Public Use
  Company Number: US-MYLANLABS-2011S1018177

PATIENT
  Age: 50 Year
  Sex: Male

DRUGS (3)
  1. LEVOTHYROXINE SODIUM [Suspect]
     Indication: HYPOTHYROIDISM
     Route: 048
     Dates: start: 20110727, end: 20110801
  2. LEVOTHYROXINE SODIUM [Suspect]
     Route: 048
     Dates: start: 20110727, end: 20110801
  3. AMLODIPINE BESYLATE AND BENAZEPRIL HCL [Concomitant]
     Dosage: 5MG/20MG

REACTIONS (6)
  - HEART RATE IRREGULAR [None]
  - THINKING ABNORMAL [None]
  - DRUG EFFECT INCREASED [None]
  - PALPITATIONS [None]
  - FEELING ABNORMAL [None]
  - CARDIAC FLUTTER [None]
